FAERS Safety Report 5915512-9 (Version None)
Quarter: 2008Q4

REPORT INFORMATION
  Report Type: 
  Country: None (occurrence: None)
  Receive Date: 20081010
  Receipt Date: 20080930
  Transmission Date: 20090506
  Serious: Yes (Life-Threatening, Hospitalization, Other)
  Sender: FDA-Public Use
  Company Number: GB-PFIZER INC-2008008034

PATIENT
  Age: 56 Year
  Sex: Female

DRUGS (5)
  1. HYDROCORTISONE SODIUM SUCCINATE [Suspect]
     Indication: ANAPHYLACTIC REACTION
     Route: 042
  2. RANITIDINE [Suspect]
     Indication: EPIGASTRIC DISCOMFORT
     Dosage: TEXT:50MG
     Route: 042
  3. RANITIDINE [Suspect]
     Indication: PANCREATITIS
  4. EPINEPHRINE [Concomitant]
  5. OXYGEN [Concomitant]

REACTIONS (3)
  - ANAPHYLACTIC REACTION [None]
  - CARDIO-RESPIRATORY ARREST [None]
  - DRUG INEFFECTIVE [None]
